FAERS Safety Report 12206103 (Version 1)
Quarter: 2016Q1

REPORT INFORMATION
  Report Type: Report from Study
  Country: US (occurrence: US)
  Receive Date: 20160324
  Receipt Date: 20160324
  Transmission Date: 20160526
  Serious: Yes (Other)
  Sender: FDA-Public Use
  Company Number: US-ROCHE-1730322

PATIENT
  Sex: Female
  Weight: 90.8 kg

DRUGS (1)
  1. RITUXAN [Suspect]
     Active Substance: RITUXIMAB
     Indication: RHEUMATOID ARTHRITIS
     Route: 042
     Dates: start: 2013, end: 201506

REACTIONS (4)
  - Immunodeficiency [Unknown]
  - Pneumonia [Recovered/Resolved]
  - Drug dose omission [Unknown]
  - Breast cancer [Unknown]
